FAERS Safety Report 12578531 (Version 2)
Quarter: 2016Q3

REPORT INFORMATION
  Report Type: Spontaneous
  Country: US (occurrence: US)
  Receive Date: 20160721
  Receipt Date: 20160727
  Transmission Date: 20161109
  Serious: No
  Sender: FDA-Public Use
  Company Number: US-HORIZON-RAV-0142-2016

PATIENT
  Age: 3 Year
  Sex: Male

DRUGS (4)
  1. CYCLINEX [Concomitant]
  2. RAVICTI [Suspect]
     Active Substance: GLYCEROL PHENYLBUTYRATE
     Indication: ORNITHINE TRANSCARBAMOYLASE DEFICIENCY
     Dosage: 1.8 ML TID
     Dates: start: 20160303
  3. CITRULLINE [Concomitant]
     Active Substance: CITRULLINE
  4. PROTEIN [Concomitant]
     Active Substance: PROTEIN
     Dosage: 15 G

REACTIONS (6)
  - Amino acid level increased [Recovered/Resolved]
  - Fatigue [Recovered/Resolved]
  - Vomiting [Recovered/Resolved]
  - Malaise [Recovered/Resolved]
  - Decreased appetite [Recovered/Resolved]
  - Somnolence [Recovered/Resolved]

NARRATIVE: CASE EVENT DATE: 201606
